FAERS Safety Report 8188759-1 (Version None)
Quarter: 2012Q1

REPORT INFORMATION
  Report Type: 
  Country: None (occurrence: None)
  Receive Date: 20120306
  Receipt Date: 20120223
  Transmission Date: 20120608
  Serious: Yes (Hospitalization)
  Sender: FDA-Public Use
  Company Number: CH-FRI-1000028832

PATIENT
  Age: 72 Year
  Sex: Female
  Weight: 80 kg

DRUGS (21)
  1. SEROQUEL XR [Suspect]
     Dosage: 50 MG
     Route: 048
     Dates: start: 20120123, end: 20120123
  2. SEROQUEL XR [Suspect]
     Route: 048
     Dates: start: 20120125, end: 20120125
  3. METOPROLOL TARTRATE AND HYDROCHLOROTHIAZIDE [Concomitant]
     Dosage: 12.5 MG
     Route: 048
  4. CLOPIXOL [Suspect]
     Dosage: 60 MG
     Route: 048
     Dates: start: 20120130, end: 20120201
  5. SEROQUEL XR [Suspect]
     Route: 048
     Dates: start: 20120124, end: 20120124
  6. LASIX [Concomitant]
     Dosage: 250 MG
     Route: 048
     Dates: start: 20120131
  7. PRAMIPEXOLE DIHYDROCHLORIDE [Concomitant]
     Dosage: 0.075 MG
     Route: 048
     Dates: end: 20120125
  8. CLOPIXOL [Suspect]
     Dosage: 50 MG
     Route: 048
     Dates: start: 20120201, end: 20120203
  9. DISTRANEURIN [Suspect]
     Dosage: 600 MG
     Route: 048
     Dates: start: 20120124, end: 20120206
  10. DISTRANEURIN [Suspect]
  11. INSULATARD NPH HUMAN [Concomitant]
     Dosage: 30 IU
     Route: 050
  12. INSULATARD NPH HUMAN [Concomitant]
     Dosage: 16 IU
  13. ESCITALOPRAM [Suspect]
     Dosage: 15 MG
     Route: 048
     Dates: start: 20120123, end: 20120202
  14. SEROQUEL XR [Suspect]
     Route: 048
     Dates: start: 20120126, end: 20120126
  15. ACETAMINOPHEN [Concomitant]
     Dosage: 3 G
     Route: 048
  16. LASIX [Concomitant]
     Indication: RENAL FAILURE CHRONIC
     Dosage: 500 MG
     Route: 048
     Dates: end: 20120131
  17. ESCITALOPRAM [Suspect]
     Dosage: 10 MG
     Route: 048
     Dates: start: 20120203, end: 20120203
  18. PHOSPHONORM [Concomitant]
     Dosage: 900 MG
     Route: 048
  19. LEVOTHYROXINE SODIUM [Concomitant]
     Indication: HYPOTHYROIDISM
     Dosage: 150 MCG
     Route: 048
  20. CLOPIXOL [Suspect]
     Dosage: 40 MG
     Route: 048
     Dates: start: 20120127, end: 20120130
  21. BUPRENORPHINE HCL [Suspect]
     Dosage: 0.1 MG
     Route: 048
     Dates: start: 20120201, end: 20120203

REACTIONS (3)
  - CONFUSIONAL STATE [None]
  - DEHYDRATION [None]
  - RENAL FAILURE CHRONIC [None]
